FAERS Safety Report 7821352-6 (Version None)
Quarter: 2011Q4

REPORT INFORMATION
  Report Type: 
  Country: None (occurrence: None)
  Receive Date: 20111018
  Receipt Date: 20100820
  Transmission Date: 20120403
  Serious: No
  Sender: FDA-Public Use
  Company Number: US-ASTRAZENECA-2010SE39331

PATIENT
  Age: 54 Year
  Sex: Male
  Weight: 88.5 kg

DRUGS (4)
  1. IBUPROFEN [Concomitant]
     Indication: HEADACHE
     Dosage: AS REQUIRED
  2. SYMBICORT [Suspect]
     Indication: CHRONIC OBSTRUCTIVE PULMONARY DISEASE
     Dosage: 160/4.5 UG TWO PUFFS  BID
     Route: 055
     Dates: start: 20100801, end: 20100820
  3. M.V.I. [Concomitant]
     Dosage: TWO TIMES A DAY
  4. ASPIRIN [Concomitant]
     Indication: HEADACHE
     Dosage: AS REQUIRED

REACTIONS (4)
  - DYSPNOEA [None]
  - WHEEZING [None]
  - DRUG DOSE OMISSION [None]
  - CHEST DISCOMFORT [None]
